FAERS Safety Report 24395655 (Version 1)
Quarter: 2024Q4

REPORT INFORMATION
  Report Type: Spontaneous
  Country: CA (occurrence: CA)
  Receive Date: 20241004
  Receipt Date: 20241004
  Transmission Date: 20250115
  Serious: Yes (Death)
  Sender: ROCHE
  Company Number: CA-ROCHE-10000092091

PATIENT
  Age: 77 Year
  Sex: Male

DRUGS (3)
  1. BEVACIZUMAB [Suspect]
     Active Substance: BEVACIZUMAB
     Indication: Colorectal cancer metastatic
     Route: 048
  2. LONSURF [Suspect]
     Active Substance: TIPIRACIL HYDROCHLORIDE\TRIFLURIDINE
     Indication: Colorectal cancer metastatic
     Route: 048
  3. APIXABAN [Suspect]
     Active Substance: APIXABAN
     Indication: Anticoagulant therapy
     Route: 065

REACTIONS (11)
  - Cytopenia [Fatal]
  - Haemoglobin decreased [Fatal]
  - Hydronephrosis [Fatal]
  - Infection [Fatal]
  - Injection site bruising [Fatal]
  - Injection site haematoma [Fatal]
  - Internal haemorrhage [Fatal]
  - Neoplasm progression [Fatal]
  - Platelet count decreased [Fatal]
  - Red blood cell count decreased [Fatal]
  - Renal failure [Fatal]
